FAERS Safety Report 7709848-9 (Version None)
Quarter: 2011Q3

REPORT INFORMATION
  Report Type: 
  Country: None (occurrence: None)
  Receive Date: 20110825
  Receipt Date: 20110819
  Transmission Date: 20111222
  Serious: Yes (Other)
  Sender: FDA-Public Use
  Company Number: US-MERCK-1103USA03305

PATIENT
  Age: 77 Year
  Sex: Female

DRUGS (1)
  1. FOSAMAX [Suspect]
     Indication: OSTEOPOROSIS
     Route: 048
     Dates: start: 20060110, end: 20070829

REACTIONS (6)
  - DENTAL DISCOMFORT [None]
  - PAIN IN JAW [None]
  - JAW DISORDER [None]
  - OSTEONECROSIS [None]
  - TOOTHACHE [None]
  - FACIAL PAIN [None]
